FAERS Safety Report 10154645 (Version 2)
Quarter: 2014Q2

REPORT INFORMATION
  Report Type: Spontaneous
  Country: US (occurrence: US)
  Receive Date: 20140506
  Receipt Date: 20140609
  Transmission Date: 20141212
  Serious: Yes (Hospitalization)
  Sender: FDA-Public Use
  Company Number: US-BAYER-2014-064864

PATIENT
  Age: 29 Year
  Sex: Female
  Weight: 50.79 kg

DRUGS (1)
  1. MIRENA [Suspect]
     Indication: CONTRACEPTION
     Dosage: 20 MCG/24HR, CONT
     Route: 015
     Dates: start: 20100426, end: 20120417

REACTIONS (4)
  - Uterine perforation [None]
  - Injury [None]
  - Pain [None]
  - Emotional distress [None]
